FAERS Safety Report 5350887-3 (Version None)
Quarter: 2007Q2

REPORT INFORMATION
  Report Type: 
  Country: None (occurrence: None)
  Receive Date: 20070608
  Receipt Date: 20070601
  Transmission Date: 20071010
  Serious: Yes (Other)
  Sender: FDA-Public Use
  Company Number: B0474273A

PATIENT
  Age: 32 Year

DRUGS (3)
  1. ZYBAN [Suspect]
     Indication: DRUG USE FOR UNKNOWN INDICATION
     Route: 048
  2. CODEINE SUL TAB [Concomitant]
  3. MIRTAZAPINE [Concomitant]
     Route: 048

REACTIONS (1)
  - PRIAPISM [None]
